FAERS Safety Report 10374602 (Version 1)
Quarter: 2014Q3

REPORT INFORMATION
  Report Type: Spontaneous
  Country: US (occurrence: None)
  Receive Date: 20140808
  Receipt Date: 20140808
  Transmission Date: 20150326
  Serious: Yes (Life-Threatening, Hospitalization, Disabling, Other)
  Sender: FDA-Public Use
  Company Number: None

PATIENT
  Age: 42 Year
  Sex: Female

DRUGS (1)
  1. FLUOROURACIL. [Suspect]
     Active Substance: FLUOROURACIL
     Indication: CHEMOTHERAPY

REACTIONS (8)
  - Brain injury [None]
  - Toxicity to various agents [None]
  - General physical health deterioration [None]
  - Infection [None]
  - Pneumonia [None]
  - Coma [None]
  - Dihydropyrimidine dehydrogenase deficiency [None]
  - Mucosal inflammation [None]

NARRATIVE: CASE EVENT DATE: 20140319
